FAERS Safety Report 5293458-X (Version None)
Quarter: 2007Q2

REPORT INFORMATION
  Report Type: 
  Country: None (occurrence: None)
  Receive Date: 20070411
  Receipt Date: 20070330
  Transmission Date: 20071010
  Serious: Yes (Other)
  Sender: FDA-Public Use
  Company Number: AU-SANOFI-SYNTHELABO-A01200703431

PATIENT
  Sex: Male

DRUGS (3)
  1. PREDNISONE TAB [Concomitant]
     Indication: DRUG USE FOR UNKNOWN INDICATION
     Dosage: UNK
     Route: 065
  2. RISPERDAL [Concomitant]
     Indication: DRUG USE FOR UNKNOWN INDICATION
     Dosage: UNK
     Route: 065
  3. STILNOX [Suspect]
     Indication: SLEEP DISORDER
     Dosage: 10 MG
     Route: 048

REACTIONS (3)
  - ABNORMAL SLEEP-RELATED EVENT [None]
  - FAECAL INCONTINENCE [None]
  - SLEEP WALKING [None]
